FAERS Safety Report 23096101 (Version 1)
Quarter: 2023Q4

REPORT INFORMATION
  Report Type: Spontaneous
  Country: US (occurrence: None)
  Receive Date: 20231019
  Receipt Date: 20231019
  Transmission Date: 20240110
  Serious: Yes (Life-Threatening, Hospitalization)
  Sender: FDA-Public Use
  Company Number: None

PATIENT
  Age: 64 Year
  Sex: Male

DRUGS (2)
  1. APIXABAN [Suspect]
     Active Substance: APIXABAN
     Dosage: FREQUENCY : TWICE A DAY;?
     Route: 048
     Dates: start: 20220426, end: 20221121
  2. MELOXICAM [Suspect]
     Active Substance: MELOXICAM
     Dosage: FREQUENCY : DAILY;?
     Route: 048
     Dates: start: 20160222, end: 20221121

REACTIONS (9)
  - Subdural haematoma [None]
  - Fall [None]
  - Head injury [None]
  - Loss of consciousness [None]
  - Urinary tract infection [None]
  - Encephalopathy [None]
  - Post-traumatic stress disorder [None]
  - Pain [None]
  - Multiple organ dysfunction syndrome [None]

NARRATIVE: CASE EVENT DATE: 20221121
